FAERS Safety Report 21100167 (Version 1)
Quarter: 2022Q3

REPORT INFORMATION
  Report Type: Spontaneous
  Country: US (occurrence: None)
  Receive Date: 20220719
  Receipt Date: 20220719
  Transmission Date: 20221027
  Serious: Yes (Hospitalization, Disabling)
  Sender: FDA-Public Use
  Company Number: None

PATIENT
  Age: 52 Year
  Sex: Female
  Weight: 74.25 kg

DRUGS (2)
  1. PAXLOVID [Suspect]
     Active Substance: NIRMATRELVIR\RITONAVIR
     Indication: COVID-19
     Dates: start: 20220701, end: 20220706
  2. Olmesartan/HCTZ [Concomitant]

REACTIONS (5)
  - Myalgia [None]
  - Feeling hot [None]
  - Erythema [None]
  - Swelling [None]
  - Mobility decreased [None]

NARRATIVE: CASE EVENT DATE: 20220703
